FAERS Safety Report 12475639 (Version 1)
Quarter: 2016Q2

REPORT INFORMATION
  Report Type: Spontaneous
  Country: US (occurrence: US)
  Receive Date: 20160617
  Receipt Date: 20160617
  Transmission Date: 20160815
  Serious: No
  Sender: FDA-Public Use
  Company Number: US-THE MEDICINES COMPANY-US-MDCO-15-00390

PATIENT
  Sex: Male

DRUGS (1)
  1. ORBACTIV [Suspect]
     Active Substance: ORITAVANCIN
     Indication: CELLULITIS STAPHYLOCOCCAL
     Dosage: 750 CC
     Route: 041
     Dates: start: 20150730, end: 20150730

REACTIONS (4)
  - Abdominal pain [Recovered/Resolved]
  - Product reconstitution issue [Recovered/Resolved]
  - Flushing [Recovered/Resolved]
  - Incorrect drug administration rate [Recovered/Resolved]

NARRATIVE: CASE EVENT DATE: 20150730
